FAERS Safety Report 7125494-2 (Version None)
Quarter: 2010Q4

REPORT INFORMATION
  Report Type: 
  Country: None (occurrence: None)
  Receive Date: 20101112
  Receipt Date: 20101104
  Transmission Date: 20110411
  Serious: Yes (Death)
  Sender: FDA-Public Use
  Company Number: 107823-1

PATIENT
  Age: 80 Year
  Sex: Female

DRUGS (7)
  1. DILTIAZEM HCL [Suspect]
     Indication: PRODUCT USED FOR UNKNOWN INDICATION
     Dosage: 10MG, IVPB
     Route: 042
     Dates: start: 20101017
  2. FENTANYL [Concomitant]
  3. ONDANSETRON [Concomitant]
  4. HYDROMORPHONE HCL [Concomitant]
  5. ADENOSINE [Concomitant]
  6. DIGOXIN [Concomitant]
  7. AVELOX [Concomitant]

REACTIONS (8)
  - APNOEA [None]
  - BLOOD PRESSURE IMMEASURABLE [None]
  - CYANOSIS [None]
  - DYSPNOEA [None]
  - ERYTHEMA [None]
  - HEART RATE DECREASED [None]
  - PULSE ABSENT [None]
  - SINUS TACHYCARDIA [None]
